FAERS Safety Report 11047872 (Version 1)
Quarter: 2015Q2

REPORT INFORMATION
  Report Type: Spontaneous
  Country: US (occurrence: None)
  Receive Date: 20150417
  Receipt Date: 20150417
  Transmission Date: 20150821
  Serious: Yes (Disabling)
  Sender: FDA-Public Use
  Company Number: None

PATIENT
  Age: 25 Year
  Sex: Female
  Weight: 55.79 kg

DRUGS (5)
  1. LARIAM [Suspect]
     Active Substance: MEFLOQUINE HYDROCHLORIDE
     Indication: MALARIA
     Route: 048
     Dates: start: 19920601, end: 19920608
  2. SLEEP TABLETS [Concomitant]
  3. ANTI-HYSTAMINES [Concomitant]
  4. ANTI-ANXIETY TABLETS [Concomitant]
  5. MULTI-VITAMIN [Concomitant]
     Active Substance: .ALPHA.-TOCOPHEROL ACETATE, DL-\ASCORBIC ACID\CYANOCOBALAMIN\FLUORIDE ION\FOLIC ACID\NIACIN\PYRIDOXINE\RIBOFLAVIN\THIAMINE\VITAMIN A\VITAMIN D

REACTIONS (5)
  - Anxiety [None]
  - Sleep disorder [None]
  - Depression [None]
  - Crying [None]
  - Disturbance in attention [None]

NARRATIVE: CASE EVENT DATE: 19920601
